FAERS Safety Report 25220796 (Version 1)
Quarter: 2025Q2

REPORT INFORMATION
  Report Type: Spontaneous
  Country: US (occurrence: None)
  Receive Date: 20250419
  Receipt Date: 20250419
  Transmission Date: 20250717
  Serious: Yes (Hospitalization)
  Sender: FDA-CTU
  Company Number: None

PATIENT
  Age: 68 Year
  Sex: Female
  Weight: 88.3 kg

DRUGS (2)
  1. FLUOROURACIL [Suspect]
     Active Substance: FLUOROURACIL
     Dates: end: 20200814
  2. MITOMYCIN C [Suspect]
     Active Substance: MITOMYCIN
     Dates: end: 20200810

REACTIONS (11)
  - Cough [None]
  - Full blood count abnormal [None]
  - Pancytopenia [None]
  - Thrombotic thrombocytopenic purpura [None]
  - Haemolytic uraemic syndrome [None]
  - Sepsis [None]
  - Adverse drug reaction [None]
  - Myeloproliferative neoplasm [None]
  - Febrile neutropenia [None]
  - Myositis [None]
  - Arthralgia [None]

NARRATIVE: CASE EVENT DATE: 20230619
